FAERS Safety Report 9452891 (Version 1)
Quarter: 2013Q3

REPORT INFORMATION
  Report Type: Spontaneous
  Country: SE (occurrence: SE)
  Receive Date: 20130812
  Receipt Date: 20130812
  Transmission Date: 20140515
  Serious: Yes (Other)
  Sender: FDA-Public Use
  Company Number: SE-PFIZER INC-2013229699

PATIENT
  Age: 79 Year
  Sex: Male

DRUGS (1)
  1. TOVIAZ [Suspect]
     Indication: HYPERTONIC BLADDER
     Dosage: 8 MG, 1X/DAY
     Dates: start: 20130415, end: 20130802

REACTIONS (1)
  - Urinary tract disorder [Not Recovered/Not Resolved]
